FAERS Safety Report 7091503-2 (Version None)
Quarter: 2010Q4

REPORT INFORMATION
  Report Type: 
  Country: None (occurrence: None)
  Receive Date: 20101109
  Receipt Date: 20101108
  Transmission Date: 20110411
  Serious: Yes (Hospitalization)
  Sender: FDA-Public Use
  Company Number: IT-PFIZER INC-2010135001

PATIENT
  Age: 61 Year
  Sex: Female

DRUGS (2)
  1. FELDENE [Suspect]
     Indication: BACK PAIN
     Dosage: 20 MG/ML, SINGLE
     Route: 030
     Dates: start: 20101013, end: 20101013
  2. MUSCORIL [Concomitant]
     Dosage: 4 MG, SINGLE
     Route: 030
     Dates: start: 20101013, end: 20101013

REACTIONS (4)
  - EXPIRED DRUG ADMINISTERED [None]
  - OEDEMA [None]
  - PARAESTHESIA [None]
  - PRURITUS [None]
